FAERS Safety Report 6709322-2 (Version None)
Quarter: 2010Q2

REPORT INFORMATION
  Report Type: 
  Country: None (occurrence: None)
  Receive Date: 20100504
  Receipt Date: 20100211
  Transmission Date: 20101027
  Serious: No
  Sender: FDA-Public Use
  Company Number: GB-ASTRAZENECA-2010SE06170

PATIENT
  Age: 69 Year
  Sex: Male

DRUGS (2)
  1. NEXIUM [Suspect]
     Route: 048
  2. XANAX [Concomitant]

REACTIONS (2)
  - PRE-EXISTING CONDITION IMPROVED [None]
  - WRONG DRUG ADMINISTERED [None]
